FAERS Safety Report 21172331 (Version 2)
Quarter: 2022Q3

REPORT INFORMATION
  Report Type: Spontaneous
  Country: US (occurrence: US)
  Receive Date: 20220804
  Receipt Date: 20220823
  Transmission Date: 20221027
  Serious: Yes (Other)
  Sender: FDA-Public Use
  Company Number: US-OTSUKA-2022_039065

PATIENT
  Sex: Male

DRUGS (5)
  1. ABILIFY MAINTENA [Suspect]
     Active Substance: ARIPIPRAZOLE
     Indication: Schizophrenia
     Dosage: 400 MG, QM
     Route: 030
     Dates: start: 20220726
  2. ABILIFY MAINTENA [Suspect]
     Active Substance: ARIPIPRAZOLE
     Dosage: 300 MG, QM
     Route: 030
     Dates: start: 20220322
  3. ATOMOXETINE [Concomitant]
     Active Substance: ATOMOXETINE
     Indication: Product used for unknown indication
     Dosage: UNK
     Route: 065
  4. QUINIDINE [Concomitant]
     Active Substance: QUINIDINE
     Indication: Product used for unknown indication
     Dosage: 0.2 MG, QD (AT NIGHT)
     Route: 065
  5. HYDROXYZINE [Concomitant]
     Active Substance: HYDROXYZINE HYDROCHLORIDE
     Indication: Product used for unknown indication
     Dosage: UNK
     Route: 065

REACTIONS (10)
  - Hallucination [Recovered/Resolved]
  - Dehydration [Recovered/Resolved]
  - Agitation [Recovered/Resolved]
  - Insomnia [Recovered/Resolved]
  - Vision blurred [Recovered/Resolved]
  - Dizziness [Recovered/Resolved]
  - Headache [Recovered/Resolved]
  - Drug ineffective [Unknown]
  - Product use issue [Unknown]
  - Underdose [Unknown]

NARRATIVE: CASE EVENT DATE: 20220322
